FAERS Safety Report 6593793-9 (Version None)
Quarter: 2010Q1

REPORT INFORMATION
  Report Type: 
  Country: None (occurrence: None)
  Receive Date: 20100218
  Receipt Date: 20100218
  Transmission Date: 20100710
  Serious: No
  Sender: FDA-Public Use
  Company Number: None

PATIENT
  Age: 46 Year
  Sex: Male
  Weight: 69.5 kg

DRUGS (1)
  1. ROLAIDS ANTACID/CALCIUM SUPPLEMENT CALCIUM CARBONATE 675 MG, MAGNES HY [Suspect]

REACTIONS (3)
  - ABDOMINAL DISCOMFORT [None]
  - ERUCTATION [None]
  - PRODUCT QUALITY ISSUE [None]
